FAERS Safety Report 11704544 (Version 2)
Quarter: 2015Q4

REPORT INFORMATION
  Report Type: Spontaneous
  Country: US (occurrence: US)
  Receive Date: 20151106
  Receipt Date: 20151110
  Transmission Date: 20160304
  Serious: No
  Sender: FDA-Public Use
  Company Number: US-PFIZER INC-2015378178

PATIENT
  Age: 71 Year
  Sex: Female

DRUGS (2)
  1. PREMARIN [Suspect]
     Active Substance: ESTROGENS, CONJUGATED
     Indication: VULVOVAGINAL DRYNESS
     Dosage: SMALL AMOUNT TO VAGINAL AREA ONCE PER WEEK, WEEKLY
     Route: 067
     Dates: start: 20150819
  2. BACTRIM [Suspect]
     Active Substance: SULFAMETHOXAZOLE\TRIMETHOPRIM
     Dosage: [SULFAMETHOXAZOLE 800 MG /TRIMETHOPRIM 160 MG] 1 TABLET TWICE A DAY FOR 8 DAYS
     Dates: start: 20151021, end: 20151028

REACTIONS (1)
  - Vulvovaginal erythema [Not Recovered/Not Resolved]
